FAERS Safety Report 21032045 (Version 1)
Quarter: 2022Q3

REPORT INFORMATION
  Report Type: Spontaneous
  Country: GB (occurrence: GB)
  Receive Date: 20220701
  Receipt Date: 20220701
  Transmission Date: 20221027
  Serious: Yes (Hospitalization, Other)
  Sender: FDA-Public Use
  Company Number: GB-NOVITIUMPHARMA-2022GBNVP00094

PATIENT
  Age: 30 Year
  Sex: Male

DRUGS (7)
  1. PYRAZINAMIDE [Suspect]
     Active Substance: PYRAZINAMIDE
     Indication: Meningitis tuberculous
     Route: 048
  2. RIFAMPIN [Concomitant]
     Active Substance: RIFAMPIN
     Indication: Meningitis tuberculous
     Route: 042
  3. RIFAMPIN [Concomitant]
     Active Substance: RIFAMPIN
  4. ISONIAZID [Concomitant]
     Active Substance: ISONIAZID
     Indication: Meningitis tuberculous
     Route: 042
  5. LEVOFLOXACIN [Concomitant]
     Active Substance: LEVOFLOXACIN
     Indication: Meningitis tuberculous
     Route: 042
  6. DEXAMETHASONE [Concomitant]
     Active Substance: DEXAMETHASONE
     Indication: Meningitis tuberculous
     Route: 042
  7. LINEZOLID [Concomitant]
     Active Substance: LINEZOLID
     Indication: Meningitis tuberculous

REACTIONS (2)
  - Neuropathy peripheral [Recovered/Resolved]
  - Blood uric acid increased [Recovered/Resolved]
